FAERS Safety Report 24209348 (Version 1)
Quarter: 2024Q3

REPORT INFORMATION
  Report Type: Spontaneous
  Country: US (occurrence: None)
  Receive Date: 20240813
  Receipt Date: 20240813
  Transmission Date: 20241017
  Serious: No
  Sender: Public
  Company Number: None

PATIENT
  Age: 22 Year
  Sex: Female
  Weight: 83.25 kg

DRUGS (5)
  1. AUVELITY [Suspect]
     Active Substance: BUPROPION HYDROCHLORIDE\DEXTROMETHORPHAN HYDROBROMIDE
     Indication: Depression
     Dosage: 2 TABLETS TWICE A DAY ORAL
     Route: 048
     Dates: start: 20240808
  2. BUSPAR [Concomitant]
     Active Substance: BUSPIRONE HYDROCHLORIDE
  3. 5000 IU VITAMIN D [Concomitant]
  4. MAGNESIUM [Concomitant]
  5. MELATONIN [Concomitant]
     Active Substance: MELATONIN

REACTIONS (7)
  - Dizziness [None]
  - Anxiety [None]
  - Panic attack [None]
  - Disorientation [None]
  - Increased appetite [None]
  - Nausea [None]
  - Euphoric mood [None]

NARRATIVE: CASE EVENT DATE: 20240812
